FAERS Safety Report 20178315 (Version 1)
Quarter: 2021Q4

REPORT INFORMATION
  Report Type: Spontaneous
  Country: US (occurrence: US)
  Receive Date: 20211213
  Receipt Date: 20211213
  Transmission Date: 20220303
  Serious: Yes (Other)
  Sender: FDA-Public Use
  Company Number: US-CIPHER-2021-US-000254

PATIENT
  Age: 49 Year
  Sex: Male
  Weight: 71.7 kg

DRUGS (1)
  1. TRAMADOL HYDROCHLORIDE [Suspect]
     Active Substance: TRAMADOL HYDROCHLORIDE

REACTIONS (9)
  - Myalgia [Unknown]
  - Muscle spasms [Unknown]
  - Myositis [Unknown]
  - Drug dependence [Unknown]
  - Crohn^s disease [Unknown]
  - Pulmonary arterial pressure increased [Unknown]
  - Dyspnoea [Recovering/Resolving]
  - Fatigue [Recovering/Resolving]
  - Pain in jaw [Unknown]
